FAERS Safety Report 19747013 (Version 1)
Quarter: 2021Q3

REPORT INFORMATION
  Report Type: Spontaneous
  Country: LT (occurrence: LT)
  Receive Date: 20210826
  Receipt Date: 20210826
  Transmission Date: 20211014
  Serious: Yes (Hospitalization, Other)
  Sender: FDA-Public Use
  Company Number: LT-ORION CORPORATION ORION PHARMA-21_00015502

PATIENT
  Age: 70 Year
  Sex: Female

DRUGS (3)
  1. VINORELBINE [Suspect]
     Active Substance: VINORELBINE TARTRATE
     Indication: INFLAMMATORY MYOFIBROBLASTIC TUMOUR
     Route: 065
     Dates: start: 202004, end: 202011
  2. METHOTREXATE. [Suspect]
     Active Substance: METHOTREXATE
     Indication: INFLAMMATORY MYOFIBROBLASTIC TUMOUR
     Route: 065
     Dates: start: 202004, end: 202011
  3. VINBLASTINE [Suspect]
     Active Substance: VINBLASTINE
     Indication: INFLAMMATORY MYOFIBROBLASTIC TUMOUR
     Route: 065
     Dates: start: 202004, end: 202011

REACTIONS (4)
  - Drug ineffective [Recovering/Resolving]
  - Cholangitis [Recovering/Resolving]
  - Infection [Recovering/Resolving]
  - Sepsis [Recovering/Resolving]

NARRATIVE: CASE EVENT DATE: 2020
